FAERS Safety Report 9134644 (Version 2)
Quarter: 2013Q2

REPORT INFORMATION
  Report Type: Spontaneous
  Country: US (occurrence: US)
  Receive Date: 20130304
  Receipt Date: 20130530
  Transmission Date: 20140414
  Serious: No
  Sender: FDA-Public Use
  Company Number: US-PFIZER INC-2013071531

PATIENT
  Age: 55 Year
  Sex: Female
  Weight: 70.75 kg

DRUGS (2)
  1. ADVIL [Suspect]
     Indication: MIGRAINE
     Dosage: 200 MG, AS NEEDED
  2. ADVIL [Suspect]
     Dosage: UNK

REACTIONS (3)
  - Gastric disorder [Unknown]
  - Abdominal pain upper [Unknown]
  - Campbell de Morgan spots [Unknown]
